FAERS Safety Report 24020717 (Version 4)
Quarter: 2024Q3

REPORT INFORMATION
  Report Type: Spontaneous
  Country: US (occurrence: US)
  Receive Date: 20240627
  Receipt Date: 20240904
  Transmission Date: 20241017
  Serious: No
  Sender: PFIZER
  Company Number: US-PFIZER INC-202400200139

PATIENT
  Age: 69 Year
  Sex: Female
  Weight: 78.47 kg

DRUGS (13)
  1. IBRANCE [Suspect]
     Active Substance: PALBOCICLIB
     Indication: Breast cancer metastatic
     Dosage: UNK
     Dates: start: 2023
  2. IBRANCE [Suspect]
     Active Substance: PALBOCICLIB
     Dosage: 125 MG, CYCLIC (3 WEEKS ON, 1 WEEK OFF)
     Route: 048
     Dates: start: 20240327, end: 20240520
  3. IBRANCE [Suspect]
     Active Substance: PALBOCICLIB
     Dosage: 125 MG, CYCLIC (3 WEEKS ON, 1 WEEK OFF)
     Route: 048
     Dates: start: 20240527, end: 20240617
  4. IBRANCE [Suspect]
     Active Substance: PALBOCICLIB
     Dosage: 125 MG, CYCLIC (3 WEEKS ON TAKING 1 TABLET A DAY AND THEN 1 WEEK OFF)
     Route: 048
     Dates: end: 2024
  5. IBRANCE [Suspect]
     Active Substance: PALBOCICLIB
     Dosage: 125 MG (TAKE ONE TABLET DAILY 1-21 DAYS)
  6. FULVESTRANT [Concomitant]
     Active Substance: FULVESTRANT
     Dosage: 25 MG, MONTHLY ( 1X A MONTH)
  7. ALBUTEROL [Concomitant]
     Active Substance: ALBUTEROL
     Indication: Asthma
     Dosage: UNK, AS NEEDED
  8. ALBUTEROL [Concomitant]
     Active Substance: ALBUTEROL
     Indication: Hypersensitivity
  9. DENOSUMAB [Concomitant]
     Active Substance: DENOSUMAB
     Dosage: 1 MG, MONTHLY (1X A MONTH)
  10. DILTIAZEM [Concomitant]
     Active Substance: DILTIAZEM
     Indication: Hypertension
     Dosage: 120 MG, 1X/DAY (ONE AT NIGHT)
     Dates: start: 2007
  11. DILTIAZEM [Concomitant]
     Active Substance: DILTIAZEM
     Dosage: 120 (UNITS NOT REPORTED), 2X/DAY
  12. PRAVASTATIN [Concomitant]
     Active Substance: PRAVASTATIN
     Indication: Blood cholesterol increased
     Dosage: 20 MG, 1X/DAY (AT NIGHT)
  13. PRAVASTATIN [Concomitant]
     Active Substance: PRAVASTATIN
     Dosage: 20 (UNITS NOT REPORTED), 1X/DAY

REACTIONS (8)
  - Red blood cell count decreased [Recovering/Resolving]
  - Red cell distribution width increased [Recovering/Resolving]
  - Ligament sprain [Unknown]
  - White blood cell count decreased [Recovering/Resolving]
  - Fatigue [Recovering/Resolving]
  - Asthenia [Recovering/Resolving]
  - Diarrhoea [Recovering/Resolving]
  - Intentional product misuse [Unknown]

NARRATIVE: CASE EVENT DATE: 20240620
